FAERS Safety Report 9464088 (Version 8)
Quarter: 2015Q1

REPORT INFORMATION
  Report Type: Report from Study
  Country: US (occurrence: US)
  Receive Date: 20130819
  Receipt Date: 20150320
  Transmission Date: 20150721
  Serious: Yes (Other)
  Sender: FDA-Public Use
  Company Number: US-SANOFI-AVENTIS-2013SA081902

PATIENT
  Age: 63 Year
  Sex: Female
  Weight: 72.57 kg

DRUGS (2)
  1. AUBAGIO [Suspect]
     Active Substance: TERIFLUNOMIDE
     Indication: MULTIPLE SCLEROSIS
     Route: 048
     Dates: end: 20150306
  2. AUBAGIO [Suspect]
     Active Substance: TERIFLUNOMIDE
     Indication: MULTIPLE SCLEROSIS
     Route: 048
     Dates: start: 20130331, end: 20131104

REACTIONS (13)
  - Wrist fracture [Unknown]
  - Cough [Unknown]
  - Pyrexia [Recovering/Resolving]
  - Infection [Unknown]
  - Neutrophil count decreased [Recovered/Resolved]
  - Sensitivity of teeth [Unknown]
  - Viral infection [Unknown]
  - Drug dose omission [Unknown]
  - Constipation [Recovered/Resolved]
  - Headache [Recovering/Resolving]
  - Fall [Unknown]
  - Nuclear magnetic resonance imaging brain abnormal [Unknown]
  - Oropharyngeal pain [Recovering/Resolving]

NARRATIVE: CASE EVENT DATE: 20130804
